FAERS Safety Report 16115166 (Version 1)
Quarter: 2019Q1

REPORT INFORMATION
  Report Type: Spontaneous
  Country: US (occurrence: US)
  Receive Date: 20190325
  Receipt Date: 20190325
  Transmission Date: 20190418
  Serious: Yes (Hospitalization, Other)
  Sender: FDA-Public Use
  Company Number: US-VIIV HEALTHCARE LIMITED-US2019052604

PATIENT
  Age: 56 Year
  Sex: Male

DRUGS (7)
  1. SUSTIVA [Concomitant]
     Active Substance: EFAVIRENZ
  2. DEPAKOTE [Concomitant]
     Active Substance: DIVALPROEX SODIUM
  3. JULUCA [Suspect]
     Active Substance: DOLUTEGRAVIR SODIUM\RILPIVIRINE HYDROCHLORIDE
     Indication: HIV INFECTION
     Dosage: UNK
     Route: 048
     Dates: start: 20190311, end: 20190318
  4. REYATAZ [Concomitant]
     Active Substance: ATAZANAVIR SULFATE
  5. XANAX [Concomitant]
     Active Substance: ALPRAZOLAM
  6. LAMIVUDINE. [Concomitant]
     Active Substance: LAMIVUDINE
  7. NORVIR [Concomitant]
     Active Substance: RITONAVIR

REACTIONS (6)
  - Insomnia [Recovered/Resolved]
  - Hallucination, visual [Recovered/Resolved]
  - Hallucination, auditory [Recovered/Resolved]
  - Nausea [Recovered/Resolved]
  - Seizure [Recovered/Resolved]
  - Vomiting [Recovered/Resolved]

NARRATIVE: CASE EVENT DATE: 20190312
